FAERS Safety Report 20803892 (Version 6)
Quarter: 2023Q1

REPORT INFORMATION
  Report Type: Report from Study
  Country: US (occurrence: US)
  Receive Date: 20220509
  Receipt Date: 20230330
  Transmission Date: 20230418
  Serious: No
  Sender: FDA-Public Use
  Company Number: US-NOVARTISTESTPH-NVSC2022US105234

PATIENT
  Sex: Female

DRUGS (1)
  1. ENTRESTO [Suspect]
     Active Substance: SACUBITRIL\VALSARTAN
     Indication: Product used for unknown indication
     Dosage: UNK
     Route: 065

REACTIONS (9)
  - Sciatica [Unknown]
  - Somnolence [Unknown]
  - Sinus disorder [Unknown]
  - Feeling abnormal [Unknown]
  - Throat clearing [Unknown]
  - Dysphonia [Unknown]
  - Bronchitis [Unknown]
  - Cough [Unknown]
  - Fatigue [Recovered/Resolved]
